FAERS Safety Report 10922318 (Version 2)
Quarter: 2015Q2

REPORT INFORMATION
  Report Type: Spontaneous
  Country: FI (occurrence: FI)
  Receive Date: 20150317
  Receipt Date: 20150408
  Transmission Date: 20150821
  Serious: Yes (Life-Threatening)
  Sender: FDA-Public Use
  Company Number: PHHY2015FI028318

PATIENT
  Sex: Female

DRUGS (2)
  1. VOLTAREN [Suspect]
     Active Substance: DICLOFENAC SODIUM
     Indication: PRODUCT USED FOR UNKNOWN INDICATION
     Dosage: 1 DF, UNK
     Route: 065
  2. DOLAN [Suspect]
     Active Substance: ACETAMINOPHEN\ORPHENADRINE CITRATE
     Indication: PRODUCT USED FOR UNKNOWN INDICATION
     Dosage: 1 DF, ((ORPHENADRINE 35MG AND PARACETAMOL 450MG))
     Route: 065

REACTIONS (7)
  - Dysphagia [Unknown]
  - Mood altered [Unknown]
  - Hypoaesthesia [Unknown]
  - Dyspnoea [Unknown]
  - Dizziness [Unknown]
  - Pain in extremity [Unknown]
  - Dry mouth [Unknown]

NARRATIVE: CASE EVENT DATE: 20150306
